FAERS Safety Report 21995782 (Version 1)
Quarter: 2023Q1

REPORT INFORMATION
  Report Type: Spontaneous
  Country: US (occurrence: None)
  Receive Date: 20230214
  Receipt Date: 20230214
  Transmission Date: 20230417
  Serious: No
  Sender: FDA-Public Use
  Company Number: None

PATIENT
  Sex: Male
  Weight: 66.22 kg

DRUGS (11)
  1. ABIRATERONE ACETATE [Suspect]
     Active Substance: ABIRATERONE ACETATE
     Indication: Prostate cancer
     Dosage: FREQUENCY : DAILY;?
     Route: 048
     Dates: start: 20230115
  2. ACETAMINOPHEN [Concomitant]
     Active Substance: ACETAMINOPHEN
  3. ASPIRIN [Concomitant]
     Active Substance: ASPIRIN
  4. AMLODIPINE BESYLATE ORAL TABLET [Concomitant]
  5. ATORVASTATIN CALCIUM [Concomitant]
     Active Substance: ATORVASTATIN CALCIUM
  6. GABAPENTIN ORAL CAPSULE [Concomitant]
  7. HYDROCHLOROTHIAZIDE ORAL CAPSULE [Concomitant]
  8. LOSARTAN POTASSIUM ORAL TABLET [Concomitant]
  9. MIRTAZAPINE ORAL TABLET [Concomitant]
  10. OMEPRAZOLE [Concomitant]
     Active Substance: OMEPRAZOLE
  11. TRAMADOL HCI ORAL [Concomitant]

REACTIONS (4)
  - Fatigue [None]
  - Haemoglobin decreased [None]
  - Transfusion [None]
  - Blood iron decreased [None]
